FAERS Safety Report 12444486 (Version 1)
Quarter: 2016Q2

REPORT INFORMATION
  Report Type: Spontaneous
  Country: US (occurrence: US)
  Receive Date: 20160607
  Receipt Date: 20160607
  Transmission Date: 20160815
  Serious: No
  Sender: FDA-Public Use
  Company Number: US-PERRIGO-15US010578

PATIENT
  Sex: Male
  Weight: 66.21 kg

DRUGS (2)
  1. MINOXIDIL. [Suspect]
     Active Substance: MINOXIDIL
     Indication: ALOPECIA
     Dosage: 1/2 CAPFUL, BID
     Route: 061
     Dates: start: 2014, end: 2014
  2. MINOXIDIL. [Suspect]
     Active Substance: MINOXIDIL
     Dosage: 1/2 CAPFUL, QD
     Route: 061
     Dates: start: 2015, end: 201507

REACTIONS (5)
  - Application site erythema [Recovering/Resolving]
  - Application site pruritus [Recovering/Resolving]
  - Application site irritation [Recovering/Resolving]
  - Inappropriate schedule of drug administration [Recovered/Resolved]
  - Application site exfoliation [Recovering/Resolving]
